FAERS Safety Report 6523410-5 (Version None)
Quarter: 2009Q4

REPORT INFORMATION
  Report Type: 
  Country: None (occurrence: None)
  Receive Date: 20091231
  Receipt Date: 20091203
  Transmission Date: 20100525
  Serious: No
  Sender: FDA-Public Use
  Company Number: US-BAYER-200917338BCC

PATIENT
  Age: 68 Year
  Sex: Male
  Weight: 68 kg

DRUGS (9)
  1. ALEVE (CAPLET) [Suspect]
     Indication: BACK PAIN
     Dosage: TOTAL DAILY DOSE: 220 MG  UNIT DOSE: 220 MG
     Route: 048
     Dates: start: 20091130, end: 20091130
  2. PRAZOSIN HYDROCHLORIDE [Concomitant]
     Route: 065
  3. HYDROCHLOROTHIAZIDE [Concomitant]
     Route: 065
  4. METOPROLOL TARTRATE [Concomitant]
     Route: 065
  5. OLANZAPINE [Concomitant]
     Route: 065
  6. ASPIRIN [Concomitant]
     Route: 065
  7. DOCUSATE [Concomitant]
     Route: 065
  8. UNKNOWN CALCIUM [Concomitant]
     Route: 065
  9. CENTRUM MULTIVITAMIN [Concomitant]
     Route: 065

REACTIONS (2)
  - FAECAL VOLUME DECREASED [None]
  - FOREIGN BODY [None]
